FAERS Safety Report 7655338-1 (Version None)
Quarter: 2011Q3

REPORT INFORMATION
  Report Type: 
  Country: None (occurrence: None)
  Receive Date: 20110804
  Receipt Date: 20110720
  Transmission Date: 20111222
  Serious: Yes (Hospitalization, Other)
  Sender: FDA-Public Use
  Company Number: US-ELI_LILLY_AND_COMPANY-US200908005336

PATIENT
  Sex: Female

DRUGS (36)
  1. FORTEO [Suspect]
     Indication: OSTEOPOROSIS
     Dosage: 20 UG, DAILY (1/D)
     Dates: end: 20100501
  2. SIMVASTATIN [Concomitant]
  3. CHLORIDE [Concomitant]
  4. FORTEO [Interacting]
     Dosage: 20 UG, DAILY (1/D)
  5. LEVOXYL [Concomitant]
  6. OXYBUTIN [Concomitant]
  7. FORTEO [Interacting]
     Dosage: 20 UG, DAILY (1/D)
     Dates: start: 20100701
  8. FORTEO [Interacting]
     Dosage: 20 UG, DAILY (1/D)
  9. MUSCLE RELAXANTS [Concomitant]
     Dates: start: 20090201
  10. OXYCONTIN [Concomitant]
     Indication: ARTHRALGIA
  11. METHOTREXATE [Concomitant]
  12. METOPROLOL TARTRATE [Concomitant]
  13. FORTEO [Interacting]
     Dosage: 20 UG, QD
  14. TIOTROPIUM [Concomitant]
  15. CALCIUM WITH VITAMIN D [Concomitant]
  16. FUROSEMIDE [Concomitant]
  17. CELEXA [Concomitant]
  18. MULTI-VITAMIN [Concomitant]
  19. FORTEO [Interacting]
     Dosage: 20 UG, DAILY (1/D)
     Route: 065
  20. FORTEO [Interacting]
     Dosage: 20 UG, DAILY (1/D)
  21. FORTEO [Interacting]
     Dosage: 20 UG, DAILY (1/D)
  22. FORTEO [Interacting]
     Dosage: 20 UG, DAILY (1/D)
  23. FORTEO [Interacting]
     Dosage: 20 UG, QD
  24. SKELAXIN [Interacting]
     Indication: SURGERY
     Dosage: 400 MG, DAILY (1/D)
     Dates: start: 20090201, end: 20090801
  25. NEURONTIN [Concomitant]
     Indication: ARTHRALGIA
  26. FOLIC ACID [Concomitant]
  27. RANITIDINE [Concomitant]
  28. FORTEO [Interacting]
     Dosage: 20 UG, DAILY (1/D)
  29. VITAMIN D [Concomitant]
  30. PREDNISONE [Concomitant]
  31. VITAMIN D2 [Concomitant]
     Route: 065
  32. FORTEO [Interacting]
     Dosage: 20 UG, QD
  33. MINERAL OIL EMULSION [Concomitant]
     Indication: CONSTIPATION
  34. NITROGLYCERIN [Concomitant]
  35. POTASSIUM [Concomitant]
  36. WARFARIN SODIUM [Concomitant]

REACTIONS (37)
  - BACK PAIN [None]
  - STAPHYLOCOCCAL INFECTION [None]
  - SCREAMING [None]
  - RESPIRATORY RATE DECREASED [None]
  - DRUG INTERACTION [None]
  - STOMATITIS [None]
  - ADVERSE DRUG REACTION [None]
  - CONSTIPATION [None]
  - THROMBOSIS [None]
  - GAIT DISTURBANCE [None]
  - PRODUCTIVE COUGH [None]
  - ABNORMAL BEHAVIOUR [None]
  - NECK PAIN [None]
  - JOINT INJURY [None]
  - LIMB INJURY [None]
  - CONTUSION [None]
  - DYSPHONIA [None]
  - DISCOMFORT [None]
  - INJECTION SITE ERYTHEMA [None]
  - INJECTION SITE PAIN [None]
  - MUSCLE SPASMS [None]
  - MYOCARDIAL INFARCTION [None]
  - VITAMIN D DECREASED [None]
  - INTERVERTEBRAL DISC PROTRUSION [None]
  - FALL [None]
  - CONFUSIONAL STATE [None]
  - DYSKINESIA [None]
  - MUSCULAR WEAKNESS [None]
  - LYMPH NODE PAIN [None]
  - NASOPHARYNGITIS [None]
  - BLOOD PRESSURE DECREASED [None]
  - MUSCLE TIGHTNESS [None]
  - HEADACHE [None]
  - DERMAL CYST [None]
  - INFECTED CYST [None]
  - SECRETION DISCHARGE [None]
  - PAIN [None]
